FAERS Safety Report 8109135-3 (Version None)
Quarter: 2012Q1

REPORT INFORMATION
  Report Type: 
  Country: None (occurrence: None)
  Receive Date: 20120202
  Receipt Date: 20120109
  Transmission Date: 20120608
  Serious: No
  Sender: FDA-Public Use
  Company Number: US-AMGEN-USASP2012001375

PATIENT
  Age: 26 Year
  Sex: Male

DRUGS (2)
  1. ALCOHOL [Suspect]
     Dosage: UNK
  2. ENBREL [Suspect]
     Indication: PSORIASIS
     Dosage: 50 MG, 2 TIMES/WK
     Dates: start: 20111201, end: 20111230

REACTIONS (4)
  - TREMOR [None]
  - ANGER [None]
  - MOOD SWINGS [None]
  - NERVOUSNESS [None]
